FAERS Safety Report 14142444 (Version 1)
Quarter: 2017Q4

REPORT INFORMATION
  Report Type: Spontaneous
  Country: GB (occurrence: GB)
  Receive Date: 20171030
  Receipt Date: 20171030
  Transmission Date: 20180321
  Serious: Yes (Other)
  Sender: FDA-Public Use
  Company Number: GB-ELI_LILLY_AND_COMPANY-GB201710009272

PATIENT
  Age: 51 Year
  Sex: Female
  Weight: 68 kg

DRUGS (17)
  1. CANDESARTAN. [Concomitant]
     Active Substance: CANDESARTAN
     Dosage: 1 DF, DAILY
     Dates: start: 20170503
  2. CANESTEN [Concomitant]
     Active Substance: CLOTRIMAZOLE
     Dosage: UNK, PRN
     Dates: start: 20170503
  3. DIFFLAM [Concomitant]
     Active Substance: BENZYDAMINE HYDROCHLORIDE
     Dosage: 15 ML, EVERY 3 HRS
     Dates: start: 20170503
  4. GLYCERYL TRINITRATE [Concomitant]
     Active Substance: NITROGLYCERIN
     Dosage: 1 DF, UNKNOWN
     Dates: start: 20170503
  5. CLINDAMYCIN. [Concomitant]
     Active Substance: CLINDAMYCIN
     Dosage: 1 DF, BID
     Route: 061
     Dates: start: 20170503
  6. CO-AMOXICLAV                       /00756801/ [Concomitant]
     Active Substance: AMOXICILLIN\CLAVULANIC ACID
     Dosage: 1 DF, TID
     Dates: start: 20171010
  7. AMLODIPINE [Concomitant]
     Active Substance: AMLODIPINE BESYLATE
     Dosage: 1 DF, BID
     Dates: start: 20170503
  8. LANTUS [Concomitant]
     Active Substance: INSULIN GLARGINE
     Dosage: 20 IU, DAILY
     Dates: start: 20171016
  9. TRANEXAMIC ACID. [Concomitant]
     Active Substance: TRANEXAMIC ACID
     Dosage: 2 DF, TID
     Dates: start: 20170503
  10. HUMULIN N [Suspect]
     Active Substance: INSULIN HUMAN
     Indication: PRODUCT USED FOR UNKNOWN INDICATION
     Dosage: UNK, UNKNOWN
     Route: 065
     Dates: start: 20170607
  11. METFORMIN [Concomitant]
     Active Substance: METFORMIN HYDROCHLORIDE
     Dosage: 3 DF, BID
     Dates: start: 20170503
  12. TENORMIN [Concomitant]
     Active Substance: ATENOLOL
     Dosage: 5 ML, DAILY
     Dates: start: 20170503
  13. DIAMICRON [Concomitant]
     Active Substance: GLICLAZIDE
     Dosage: 2 DF, BID
     Dates: start: 20170503
  14. LOSEC                              /00661203/ [Concomitant]
     Dosage: 1 DF, DAILY
     Dates: start: 20170503
  15. OMACOR [Concomitant]
     Active Substance: OMEGA-3-ACID ETHYL ESTERS
     Dosage: 1 DF, DAILY
     Dates: start: 20170503
  16. EVOREL [Concomitant]
     Dosage: 1 DF, 2/W
     Route: 061
     Dates: start: 20170503
  17. GAVISCON ADVANCE [Concomitant]
     Active Substance: POTASSIUM BICARBONATE\SODIUM ALGINATE
     Dosage: 10 ML, BID
     Dates: start: 20170503

REACTIONS (3)
  - Hypersensitivity [Unknown]
  - Fluid retention [Recovered/Resolved]
  - Dyspnoea [Unknown]

NARRATIVE: CASE EVENT DATE: 20171016
